FAERS Safety Report 6960324-0 (Version None)
Quarter: 2010Q3

REPORT INFORMATION
  Report Type: 
  Country: None (occurrence: None)
  Receive Date: 20100901
  Receipt Date: 20100824
  Transmission Date: 20110219
  Serious: Yes (Hospitalization)
  Sender: FDA-Public Use
  Company Number: US-SOLVAY-00210005278

PATIENT
  Age: 36 Year
  Sex: Female
  Weight: 77.272 kg

DRUGS (7)
  1. ZANAFLEX [Concomitant]
     Indication: ARTHRALGIA
     Dosage: DAILY DOSE:  UNKNOWN
     Route: 048
  2. MELOXICAM [Concomitant]
     Indication: ARTHRALGIA
     Dosage: DAILY DOSE:  UNKNOWN
     Route: 048
  3. MIRALAX (PEG 3350) [Concomitant]
     Indication: CONSTIPATION
     Dosage: DAILY DOSE:  UNKNOWN
     Route: 048
  4. MIRALAX (PEG 3350) [Concomitant]
  5. DICYCLOMINE [Concomitant]
     Indication: IRRITABLE BOWEL SYNDROME
     Dosage: DAILY DOSE:  UNKNOWN
     Route: 048
     Dates: end: 20080101
  6. CREON [Suspect]
     Indication: PANCREATITIS CHRONIC
     Dosage: CREON-10:DAILY DOSE:UNK,MAX.6 CAPS,AS USED:2 CAPS W/MEALS,1 CAP W/SNACKS,FREQ:WITH MEALS AND SNACKS
     Route: 048
     Dates: start: 19900101, end: 20090101
  7. CREON [Suspect]
     Dosage: CREON DELAYED RELEASE:DAILY DOSE:3 DOSAGE FORM,UNIT DOSE:24,000 UNIT LIPASE/CAP, FREU:WITH EACH MEAL
     Route: 048
     Dates: start: 20090101

REACTIONS (8)
  - ABDOMINAL DISTENSION [None]
  - COLONIC OBSTRUCTION [None]
  - DRY SKIN [None]
  - GINGIVITIS [None]
  - HEADACHE [None]
  - ORAL HERPES [None]
  - RASH [None]
  - VOLVULUS [None]
